FAERS Safety Report 5801096-2 (Version None)
Quarter: 2008Q3

REPORT INFORMATION
  Report Type: 
  Country: None (occurrence: None)
  Receive Date: 20080707
  Receipt Date: 20080630
  Transmission Date: 20090109
  Serious: Yes (Life-Threatening, Other)
  Sender: FDA-Public Use
  Company Number: JP-BRISTOL-MYERS SQUIBB COMPANY-14250278

PATIENT
  Age: 38 Year
  Sex: Male

DRUGS (10)
  1. IFOMIDE [Suspect]
     Indication: CARDIAC NEOPLASM UNSPECIFIED
     Route: 042
     Dates: start: 20080310, end: 20080310
  2. MEYLON [Concomitant]
  3. DECADRON [Concomitant]
  4. KYTRIL [Concomitant]
     Dosage: INJECTION
  5. UROMITEXAN [Concomitant]
  6. FAMOTIDINE [Concomitant]
     Route: 048
  7. BLOPRESS [Concomitant]
     Route: 048
  8. ALDACTONE [Concomitant]
     Route: 048
  9. LASIX [Concomitant]
     Route: 048
  10. ARTIST [Concomitant]
     Route: 048

REACTIONS (1)
  - HAEMOPTYSIS [None]
